FAERS Safety Report 7531552-0 (Version None)
Quarter: 2011Q2

REPORT INFORMATION
  Report Type: 
  Country: None (occurrence: None)
  Receive Date: 20110601
  Receipt Date: 20110519
  Transmission Date: 20111010
  Serious: Yes (Hospitalization)
  Sender: FDA-Public Use
  Company Number: PROF20110001

PATIENT
  Age: 35 Year
  Sex: Male

DRUGS (1)
  1. PROPAFENONE HYDROCHLORIDE [Suspect]
     Indication: SUICIDE ATTEMPT
     Dosage: 10 GRAM, ONCE, ORAL
     Route: 048

REACTIONS (10)
  - HAEMOPERFUSION [None]
  - SUICIDE ATTEMPT [None]
  - SINUS TACHYCARDIA [None]
  - CONVULSION [None]
  - VENTRICULAR FIBRILLATION [None]
  - INCORRECT DOSE ADMINISTERED [None]
  - ELECTROCARDIOGRAM ABNORMAL [None]
  - POISONING DELIBERATE [None]
  - COMA [None]
  - HYPOTENSION [None]
